FAERS Safety Report 24667710 (Version 4)
Quarter: 2025Q2

REPORT INFORMATION
  Report Type: Report from Study
  Country: US (occurrence: US)
  Receive Date: 20241126
  Receipt Date: 20250507
  Transmission Date: 20250717
  Serious: Yes (Hospitalization, Other)
  Sender: ACADIA PHARMACEUTICALS
  Company Number: US-ACADIA PHARMACEUTICALS INC.-ACA-2024-PIM-007303

PATIENT
  Age: 96 Year
  Sex: Female

DRUGS (17)
  1. NUPLAZID [Suspect]
     Active Substance: PIMAVANSERIN TARTRATE
     Indication: Parkinson^s disease
     Dosage: 34 MILLIGRAM, QD
     Route: 048
     Dates: start: 20231227
  2. NUPLAZID [Suspect]
     Active Substance: PIMAVANSERIN TARTRATE
     Indication: Hallucination
     Dosage: 34 MILLIGRAM, QD
     Route: 048
     Dates: start: 20241129
  3. NUPLAZID [Suspect]
     Active Substance: PIMAVANSERIN TARTRATE
     Indication: Dementia
  4. NUPLAZID [Suspect]
     Active Substance: PIMAVANSERIN TARTRATE
     Indication: Parkinson^s disease psychosis
  5. FEBUXOSTAT [Concomitant]
     Active Substance: FEBUXOSTAT
  6. COLCHICINE [Concomitant]
     Active Substance: COLCHICINE
  7. FUROSEMIDE [Concomitant]
     Active Substance: FUROSEMIDE
  8. DONEPEZIL [Concomitant]
     Active Substance: DONEPEZIL
  9. LISINOPRIL [Concomitant]
     Active Substance: LISINOPRIL
  10. ASPIRIN [Concomitant]
     Active Substance: ASPIRIN
  11. MINERALS\VITAMINS [Concomitant]
     Active Substance: MINERALS\VITAMINS
  12. QUERCETIN [Concomitant]
     Active Substance: QUERCETIN
  13. SEROQUEL [Concomitant]
     Active Substance: QUETIAPINE FUMARATE
  14. HYDRALAZINE [Concomitant]
     Active Substance: HYDRALAZINE HYDROCHLORIDE
  15. VITAMIN D3 [Concomitant]
     Active Substance: CHOLECALCIFEROL
  16. ZINC [Concomitant]
     Active Substance: ZINC
  17. TERBINAFINE [Concomitant]
     Active Substance: TERBINAFINE

REACTIONS (5)
  - Peripheral artery occlusion [Recovered/Resolved]
  - Stent placement [Recovered/Resolved]
  - Gangrene [Recovered/Resolved]
  - Urinary tract infection [Recovered/Resolved]
  - Peripheral vascular disorder [Not Recovered/Not Resolved]

NARRATIVE: CASE EVENT DATE: 20241021
